FAERS Safety Report 26037946 (Version 1)
Quarter: 2025Q4

REPORT INFORMATION
  Report Type: Report from Study
  Country: US (occurrence: US)
  Receive Date: 20251112
  Receipt Date: 20251112
  Transmission Date: 20260118
  Serious: Yes (Hospitalization, Other)
  Sender: GALDERMA
  Company Number: US-GALDERMA-US2025022823

PATIENT

DRUGS (1)
  1. NEMOLIZUMAB [Suspect]
     Active Substance: NEMOLIZUMAB
     Indication: Dermatitis atopic
     Dosage: UNK
     Route: 058
     Dates: start: 202507, end: 202507

REACTIONS (1)
  - Cardiac failure [Unknown]

NARRATIVE: CASE EVENT DATE: 20250101
